FAERS Safety Report 5167629-7 (Version None)
Quarter: 2006Q4

REPORT INFORMATION
  Report Type: 
  Country: None (occurrence: None)
  Receive Date: 20061204
  Receipt Date: 20061204
  Transmission Date: 20070319
  Serious: No
  Sender: FDA-Public Use
  Company Number: None

PATIENT
  Age: 52 Year
  Sex: Male
  Weight: 100 kg

DRUGS (2)
  1. OLANZAPINE 30 MG [Suspect]
     Dosage: 30 MG DAILY PO
     Route: 048
  2. HALOPERIDOL 200 MG [Suspect]
     Dosage: 200 MG Q4W IM
     Route: 030

REACTIONS (2)
  - NEUTROPHIL COUNT DECREASED [None]
  - WHITE BLOOD CELL COUNT DECREASED [None]
